FAERS Safety Report 20760558 (Version 3)
Quarter: 2022Q3

REPORT INFORMATION
  Report Type: Report from Study
  Country: IL (occurrence: IL)
  Receive Date: 20220428
  Receipt Date: 20220801
  Transmission Date: 20221027
  Serious: Yes (Death, Hospitalization, Other)
  Sender: FDA-Public Use
  Company Number: IL-ABBVIE-22K-082-4371544-00

PATIENT
  Age: 80 Year
  Sex: Female

DRUGS (2)
  1. CARBIDOPA\LEVODOPA [Suspect]
     Active Substance: CARBIDOPA\LEVODOPA
     Indication: Parkinson^s disease
     Route: 050
     Dates: start: 20171122
  2. CARBIDOPA\LEVODOPA [Suspect]
     Active Substance: CARBIDOPA\LEVODOPA
     Dosage: MORNING DOSE 14ML , CONTINUOUS DOSE 5.1ML/HR , EXTRA DOSE 1.5 ML PER DOSE
     Route: 050

REACTIONS (6)
  - Death [Fatal]
  - Colon cancer [Unknown]
  - Gastrointestinal perforation [Recovered/Resolved]
  - Infection [Recovered/Resolved]
  - Obstruction gastric [Unknown]
  - Device occlusion [Unknown]

NARRATIVE: CASE EVENT DATE: 20220425
